FAERS Safety Report 21896831 (Version 8)
Quarter: 2024Q1

REPORT INFORMATION
  Report Type: Report from Study
  Country: US (occurrence: US)
  Receive Date: 20230123
  Receipt Date: 20240314
  Transmission Date: 20240410
  Serious: Yes (Hospitalization)
  Sender: FDA-Public Use
  Company Number: US-ARGENX-2022-ARGX-US002723

PATIENT

DRUGS (1)
  1. VYVGART [Suspect]
     Active Substance: EFGARTIGIMOD ALFA-FCAB
     Indication: Myasthenia gravis
     Dosage: UNK UNK, 1/WEEK
     Route: 042

REACTIONS (4)
  - Dysphagia [Unknown]
  - Symptom recurrence [Recovering/Resolving]
  - Tooth extraction [Unknown]
  - Mood altered [Unknown]
